FAERS Safety Report 19237500 (Version 1)
Quarter: 2021Q2

REPORT INFORMATION
  Report Type: Spontaneous
  Country: US (occurrence: US)
  Receive Date: 20210510
  Receipt Date: 20210510
  Transmission Date: 20210717
  Serious: No
  Sender: FDA-Public Use
  Company Number: None

PATIENT
  Age: 42 Year
  Sex: Male
  Weight: 87.75 kg

DRUGS (1)
  1. BIOFREEZE ROLL?ON [Suspect]
     Active Substance: MENTHOL
     Indication: PAIN
     Dates: start: 20210503, end: 20210504

REACTIONS (1)
  - Second degree chemical burn of skin [None]

NARRATIVE: CASE EVENT DATE: 20210504
